FAERS Safety Report 5051415-2 (Version None)
Quarter: 2006Q3

REPORT INFORMATION
  Report Type: 
  Country: None (occurrence: None)
  Receive Date: 20060714
  Receipt Date: 20060706
  Transmission Date: 20061208
  Serious: Yes (Death)
  Sender: FDA-Public Use
  Company Number: CO-ABBOTT-06P-036-0337740-00

PATIENT
  Age: 74 Year
  Sex: Male
  Weight: 47.8 kg

DRUGS (14)
  1. ZEMPLAR [Suspect]
     Indication: HYPERPARATHYROIDISM SECONDARY
     Route: 042
     Dates: start: 20060522
  2. ZEMPLAR [Suspect]
     Route: 042
     Dates: start: 20060406, end: 20060522
  3. PRAZOSIN HCL [Concomitant]
     Indication: HYPERTENSION
     Route: 048
     Dates: start: 20000101, end: 20060606
  4. OMEPRAZOLE [Concomitant]
     Indication: GASTRITIS
     Route: 048
     Dates: start: 20010101, end: 20060606
  5. METOPROLOL TARTRATE [Concomitant]
     Indication: HYPERTENSION
     Route: 048
     Dates: start: 20020101, end: 20060606
  6. METOPROLOL TARTRATE [Concomitant]
     Indication: CORONARY ARTERY DISEASE
  7. ENALAPRIL MALEATE [Concomitant]
     Indication: HYPERTENSION
     Route: 048
     Dates: start: 19970101, end: 20060606
  8. ENALAPRIL MALEATE [Concomitant]
     Indication: PROPHYLAXIS
  9. CALCIUM CARBONATE [Concomitant]
     Indication: HYPERPARATHYROIDISM SECONDARY
     Route: 048
     Dates: start: 20020101, end: 20060606
  10. EPOGEN [Concomitant]
     Indication: ANAEMIA
     Dosage: 8000 UNITS PER WEEK
     Route: 058
     Dates: start: 20020101, end: 20060606
  11. FOLIC ACID [Concomitant]
     Indication: ANAEMIA PROPHYLAXIS
     Route: 048
     Dates: start: 20020101, end: 20060606
  12. NIFEDIPINE [Concomitant]
     Indication: HYPERTENSION
     Route: 048
     Dates: start: 20000101, end: 20060606
  13. FUROSEMIDE [Concomitant]
     Indication: RENAL FAILURE CHRONIC
     Route: 048
     Dates: start: 20020101, end: 20060606
  14. LOVASTATIN [Concomitant]
     Indication: DYSLIPIDAEMIA
     Route: 048
     Dates: start: 20020101, end: 20060606

REACTIONS (1)
  - MYOCARDIAL INFARCTION [None]
